FAERS Safety Report 19086914 (Version 1)
Quarter: 2021Q2

REPORT INFORMATION
  Report Type: Spontaneous
  Country: FR (occurrence: FR)
  Receive Date: 20210402
  Receipt Date: 20210402
  Transmission Date: 20210717
  Serious: Yes (Death, Life-Threatening, Hospitalization)
  Sender: FDA-Public Use
  Company Number: FR-BAUSCH-BL-2021-010310

PATIENT
  Age: 52 Year
  Sex: Male
  Weight: 50 kg

DRUGS (5)
  1. THERALENE [Interacting]
     Active Substance: TRIMEPRAZINE
     Indication: ANXIETY
     Route: 048
     Dates: start: 20201226, end: 20210120
  2. CLOZAPINE. [Interacting]
     Active Substance: CLOZAPINE
     Indication: SCHIZOPHRENIA
     Route: 048
     Dates: start: 20201120, end: 20210120
  3. RISPERIDONE. [Interacting]
     Active Substance: RISPERIDONE
     Indication: SCHIZOPHRENIA
     Route: 048
     Dates: start: 20210119, end: 20210120
  4. DIAZEPAM. [Suspect]
     Active Substance: DIAZEPAM
     Indication: SCHIZOPHRENIA
     Route: 030
     Dates: start: 20210119, end: 20210120
  5. CYAMEMAZINE [Interacting]
     Active Substance: CYAMEMAZINE
     Indication: SCHIZOPHRENIA
     Route: 048
     Dates: start: 20210112, end: 20210120

REACTIONS (1)
  - Intestinal obstruction [Fatal]

NARRATIVE: CASE EVENT DATE: 20210120
